FAERS Safety Report 17076335 (Version 1)
Quarter: 2019Q4

REPORT INFORMATION
  Report Type: Spontaneous
  Country: CA (occurrence: CA)
  Receive Date: 20191126
  Receipt Date: 20191126
  Transmission Date: 20200122
  Serious: Yes (Death)
  Sender: FDA-Public Use
  Company Number: CA-PFIZER INC-2019506589

PATIENT

DRUGS (1)
  1. WATER BACTERIOSTATIC [Suspect]
     Active Substance: WATER
     Dosage: UNK
     Route: 065

REACTIONS (3)
  - Wrong product administered [Fatal]
  - Product packaging confusion [Fatal]
  - Death [Fatal]
